FAERS Safety Report 18994586 (Version 1)
Quarter: 2021Q1

REPORT INFORMATION
  Report Type: Spontaneous
  Country: GB (occurrence: GB)
  Receive Date: 20210310
  Receipt Date: 20210310
  Transmission Date: 20210420
  Serious: Yes (Other)
  Sender: FDA-Public Use
  Company Number: GB-PFIZER INC-2021132965

PATIENT
  Age: 75 Year
  Sex: Male

DRUGS (10)
  1. OXALIPLATIN. [Suspect]
     Active Substance: OXALIPLATIN
     Indication: COLON CANCER
     Dosage: 125 MG
     Route: 042
     Dates: start: 20200702
  2. FLUOROURACIL. [Suspect]
     Active Substance: FLUOROURACIL
     Indication: COLON CANCER
     Dosage: 600MG FLUOROURACIL 335.2MG/M2
     Route: 042
     Dates: start: 20200702
  3. FLUOROURACIL. [Suspect]
     Active Substance: FLUOROURACIL
     Dosage: 3600MG FLUOROURACIL 2011.17MG/M2
     Route: 042
     Dates: start: 20200702
  4. DEXAMETHASONE. [Concomitant]
     Active Substance: DEXAMETHASONE
     Dosage: UNK
  5. FOLINIC ACID [Suspect]
     Active Substance: LEUCOVORIN
     Indication: COLON CANCER
     Dosage: 350 MG
     Route: 042
     Dates: start: 20200702
  6. PEGFILGRASTIM [Concomitant]
     Active Substance: PEGFILGRASTIM
     Dosage: UNK
  7. LOPERAMIDE [Concomitant]
     Active Substance: LOPERAMIDE
     Dosage: UNK
  8. METOCLOPRAMIDE. [Concomitant]
     Active Substance: METOCLOPRAMIDE
     Dosage: UNK
  9. AKYNZEO [Concomitant]
     Active Substance: NETUPITANT\PALONOSETRON HYDROCHLORIDE
     Dosage: UNK
  10. DIFFLAM [BENZYDAMINE] [Concomitant]
     Active Substance: BENZYDAMINE
     Dosage: UNK

REACTIONS (3)
  - Fatigue [Unknown]
  - Neuropathy peripheral [Unknown]
  - Dyspepsia [Unknown]
